FAERS Safety Report 24622038 (Version 1)
Quarter: 2024Q4

REPORT INFORMATION
  Report Type: Spontaneous
  Country: AR (occurrence: AR)
  Receive Date: 20241114
  Receipt Date: 20241114
  Transmission Date: 20250115
  Serious: Yes (Other)
  Sender: SANDOZ
  Company Number: AR-SANDOZ-SDZ2024AR095052

PATIENT
  Age: 40 Year
  Sex: Male

DRUGS (1)
  1. HYRIMOZ [Suspect]
     Active Substance: ADALIMUMAB-ADAZ
     Indication: Psoriatic arthropathy
     Dosage: 40 MG 1EVERY 14 DAYS
     Route: 058
     Dates: start: 20240302

REACTIONS (4)
  - Skin lesion [Unknown]
  - Visual impairment [Unknown]
  - Urticaria [Unknown]
  - Alopecia [Unknown]

NARRATIVE: CASE EVENT DATE: 20240802
